FAERS Safety Report 12787908 (Version 2)
Quarter: 2016Q4

REPORT INFORMATION
  Report Type: Spontaneous
  Country: US (occurrence: US)
  Receive Date: 20160928
  Receipt Date: 20161124
  Transmission Date: 20170207
  Serious: Yes (Death)
  Sender: FDA-Public Use
  Company Number: US-PAR PHARMACEUTICAL COMPANIES-2016SCPR015313

PATIENT
  Sex: Female

DRUGS (1)
  1. ADRENALIN CHLORIDE SOLUTION [Suspect]
     Active Substance: EPINEPHRINE HYDROCHLORIDE
     Indication: HYPOTENSION
     Dosage: 1 ML 1:1000 NASAL SOLUTION WAS ADDED TO 250 ML NORMAL SALINE OR DEXTROSE
     Route: 042

REACTIONS (4)
  - Incorrect route of drug administration [Unknown]
  - Off label use [Unknown]
  - Death [Fatal]
  - Wrong drug administered [Unknown]
